FAERS Safety Report 12358458 (Version 3)
Quarter: 2017Q2

REPORT INFORMATION
  Report Type: Spontaneous
  Country: US (occurrence: US)
  Receive Date: 20160512
  Receipt Date: 20170609
  Transmission Date: 20170830
  Serious: No
  Sender: FDA-Public Use
  Company Number: US-PFIZER INC-2016249831

PATIENT
  Age: 86 Year
  Sex: Female
  Weight: 68 kg

DRUGS (3)
  1. ADVIL [Suspect]
     Active Substance: IBUPROFEN
     Indication: PAIN
     Dosage: 200 MG, (SHE WOULD TAKE 6 A DAY BUT NOW SHE CUT IT DOWN MAY BE TO JUST 1-2)
     Route: 048
     Dates: start: 20170517
  2. ADVIL [Suspect]
     Active Substance: IBUPROFEN
     Indication: HIP FRACTURE
     Dosage: 200 MG, UNK
     Route: 048
  3. ADVIL [Suspect]
     Active Substance: IBUPROFEN
     Dosage: 200 MG, UNK
     Route: 048
     Dates: start: 20170526

REACTIONS (8)
  - Gingival erythema [Unknown]
  - Vomiting [Recovering/Resolving]
  - Rash [Recovering/Resolving]
  - Product use in unapproved indication [Unknown]
  - Rash erythematous [Not Recovered/Not Resolved]
  - Nausea [Recovering/Resolving]
  - Gingival pain [Unknown]
  - Rash pruritic [Not Recovered/Not Resolved]

NARRATIVE: CASE EVENT DATE: 201705
